FAERS Safety Report 9553577 (Version 1)
Quarter: 2013Q3

REPORT INFORMATION
  Report Type: Spontaneous
  Country: US (occurrence: US)
  Receive Date: 20130925
  Receipt Date: 20130925
  Transmission Date: 20140515
  Serious: No
  Sender: FDA-Public Use
  Company Number: US-TEVA-434357USA

PATIENT
  Age: 75 Year
  Sex: Male
  Weight: 85.81 kg

DRUGS (10)
  1. AZILECT [Suspect]
     Indication: PARKINSON^S DISEASE
     Dates: start: 201301
  2. LISINOPRIL [Concomitant]
     Indication: HYPERTENSION
     Dosage: 1/2 TABLET QOD
     Route: 048
  3. GEMFIBROZIL [Concomitant]
     Indication: BLOOD TRIGLYCERIDES INCREASED
  4. GEMFIBROZIL [Concomitant]
     Indication: BLOOD CHOLESTEROL INCREASED
  5. MULTIVITAMINS [Concomitant]
     Indication: VITAMIN SUPPLEMENTATION
  6. POTASSIUM [Concomitant]
     Indication: MINERAL SUPPLEMENTATION
  7. LEVOTHYROXINE [Concomitant]
     Indication: HYPOTHYROIDISM
  8. SINEMET [Concomitant]
     Indication: PARKINSON^S DISEASE
     Dosage: 1 DOSAGE FORMS DAILY; 150MG CARBIDOPA/200MG LEVODOPA
     Route: 048
     Dates: start: 201210
  9. CARBIDOPA [Concomitant]
     Indication: PARKINSON^S DISEASE
     Route: 048
     Dates: start: 201210
  10. CARBIDOPA [Concomitant]
     Dosage: 112.5 MILLIGRAM DAILY;
     Route: 048

REACTIONS (5)
  - Jealous delusion [Not Recovered/Not Resolved]
  - Blood cholesterol increased [Unknown]
  - Blood glucose increased [Unknown]
  - Blood pressure decreased [Unknown]
  - Tremor [Not Recovered/Not Resolved]
